FAERS Safety Report 17993182 (Version 1)
Quarter: 2020Q3

REPORT INFORMATION
  Report Type: Spontaneous
  Country: US (occurrence: US)
  Receive Date: 20200708
  Receipt Date: 20200708
  Transmission Date: 20201103
  Serious: No
  Sender: FDA-Public Use
  Company Number: US-LUNDBECK-DKLU3018183

PATIENT
  Age: 35 Year
  Sex: Female

DRUGS (2)
  1. NORTHERA [Suspect]
     Active Substance: DROXIDOPA
     Indication: SYNCOPE
     Route: 048
     Dates: start: 20200610
  2. NORTHERA [Suspect]
     Active Substance: DROXIDOPA
     Indication: DIZZINESS
     Route: 048
     Dates: start: 20200627

REACTIONS (6)
  - Fall [Unknown]
  - Migraine [Unknown]
  - Cognitive disorder [Unknown]
  - Tremor [Unknown]
  - Oedema [Unknown]
  - Weight increased [Unknown]
